FAERS Safety Report 21390575 (Version 1)
Quarter: 2022Q3

REPORT INFORMATION
  Report Type: Spontaneous
  Country: US (occurrence: US)
  Receive Date: 20220929
  Receipt Date: 20220929
  Transmission Date: 20221026
  Serious: No
  Sender: FDA-Public Use
  Company Number: US-Indivior Limited-INDV-133862-2022

PATIENT
  Sex: Female

DRUGS (1)
  1. PERSERIS [Suspect]
     Active Substance: RISPERIDONE
     Indication: Product used for unknown indication
     Dosage: UNK, QMO
     Route: 065

REACTIONS (1)
  - Amenorrhoea [Unknown]
